FAERS Safety Report 6946755 (Version 1)
Quarter: 2020Q3

REPORT INFORMATION
  Report Type: Report from Study
  Country: US (occurrence: US)
  Receive Date: 20090320
  Receipt Date: 20090320
  Transmission Date: 20201104
  Serious: Yes (Other)
  Sender: FDA-Public Use
  Company Number: US-ROCHE-620901

PATIENT
  Age: 77 Year
  Sex: Female

DRUGS (1)
  1. IBANDRONIC ACID. [Suspect]
     Active Substance: IBANDRONIC ACID
     Indication: PRODUCT USED FOR UNKNOWN INDICATION
     Dosage: TAKEN FOR A FEW YEARS
     Route: 065

REACTIONS (2)
  - Fall [None]
  - Rib fracture [Unknown]
